FAERS Safety Report 18141999 (Version 1)
Quarter: 2020Q3

REPORT INFORMATION
  Report Type: Spontaneous
  Country: US (occurrence: US)
  Receive Date: 20200812
  Receipt Date: 20200812
  Transmission Date: 20201103
  Serious: No
  Sender: FDA-Public Use
  Company Number: US-BAYER-2020-162361

PATIENT
  Sex: Male

DRUGS (2)
  1. BETASERON [Suspect]
     Active Substance: INTERFERON BETA-1B
     Indication: HYPOAESTHESIA
  2. BETASERON [Suspect]
     Active Substance: INTERFERON BETA-1B
     Indication: BLINDNESS UNILATERAL
     Dosage: UNK
     Dates: start: 201606

REACTIONS (2)
  - Injection site pain [None]
  - Alopecia [None]
